FAERS Safety Report 9626467 (Version 2)
Quarter: 2014Q1

REPORT INFORMATION
  Report Type: Report from Study
  Country: US (occurrence: US)
  Receive Date: 20131016
  Receipt Date: 20140212
  Transmission Date: 20141002
  Serious: Yes (Life-Threatening, Hospitalization)
  Sender: FDA-Public Use
  Company Number: US-AMGEN-USACT2013071557

PATIENT
  Age: 58 Year
  Sex: Female

DRUGS (34)
  1. ETANERCEPT [Suspect]
     Indication: RHEUMATOID ARTHRITIS
     Dosage: 50 MG, QWK
     Route: 058
     Dates: start: 20120614, end: 20130830
  2. TYLENOL [Concomitant]
     Indication: HEADACHE
     Dosage: UNK
  3. CLINDAMYCIN HCL [Concomitant]
     Indication: CHRONIC SINUSITIS
     Dosage: 900 MG, UNK
     Route: 048
     Dates: start: 20130814
  4. CLINDAMYCIN HCL [Concomitant]
     Indication: DIABETIC FOOT
  5. ATENOLOL [Concomitant]
     Indication: CORONARY ARTERY DISEASE
     Dosage: 25 MG, QD
     Route: 048
     Dates: start: 20130301
  6. VALSARTAN [Concomitant]
     Indication: HYPERTENSION
     Dosage: 125 MG, QD
     Route: 048
     Dates: start: 201201, end: 20130913
  7. VALSARTAN [Concomitant]
     Indication: HYPERKALAEMIA
  8. METHOTREXATE [Concomitant]
     Indication: RHEUMATOID ARTHRITIS
     Dosage: 20 MG, QWK
     Route: 048
     Dates: start: 20110101
  9. HYDROXYCHLOROQUINE SULFATE [Concomitant]
     Indication: RHEUMATOID ARTHRITIS
     Dosage: 400 MG, QD
     Route: 048
     Dates: start: 19950418
  10. SIMVASTATIN [Concomitant]
     Indication: HYPERLIPIDAEMIA
     Dosage: 40 MG, QD
     Route: 048
     Dates: start: 2008
  11. LANTUS [Concomitant]
     Indication: TYPE 2 DIABETES MELLITUS
     Dosage: 50 IU, QD
     Route: 058
     Dates: start: 20110121
  12. FOLIC ACID [Concomitant]
     Dosage: 2 MG, QD
     Route: 048
     Dates: start: 20090331
  13. ERGOCALCIFEROL [Concomitant]
     Indication: PROPHYLAXIS
     Dosage: 50000 IU, 3 TIMES/WK
     Route: 048
     Dates: start: 20120515
  14. WELCHOL [Concomitant]
     Indication: DIARRHOEA
     Dosage: 625 MG, BID
     Route: 048
     Dates: start: 20120322
  15. ALEVE [Concomitant]
     Indication: HEADACHE
     Dosage: 220 MG, AS NECESSARY
     Route: 048
  16. IMODIUM [Concomitant]
     Indication: DIARRHOEA
     Dosage: 2 MG, AS NECESSARY
     Route: 048
     Dates: start: 20120522
  17. CIPRO [Concomitant]
     Indication: URINARY TRACT INFECTION
     Dosage: 500 MG, BID
     Route: 048
     Dates: start: 20120919, end: 20121001
  18. SYNVISC ONE [Concomitant]
     Indication: OSTEOARTHRITIS
     Dosage: (6 ML,L IN 1 TOTAL
     Route: 014
     Dates: start: 20121025, end: 20130529
  19. ASPIRIN [Concomitant]
     Dosage: 81 MG, QD
     Route: 048
     Dates: start: 20130212
  20. EFFIENT [Concomitant]
     Indication: CORONARY ARTERY DISEASE
     Dosage: 10 MG, QD
     Route: 048
     Dates: start: 20130301
  21. NEXIUM [Concomitant]
     Indication: GASTROOESOPHAGEAL REFLUX DISEASE
     Dosage: 40 MG, QD
     Route: 048
     Dates: start: 20130320
  22. CEFUROXIME [Concomitant]
     Indication: URINARY TRACT INFECTION
     Dosage: 1000 MG, QD
     Route: 048
     Dates: start: 20130407, end: 20130417
  23. DIPHTHERIA AND TETANUS TOXOIDS [Concomitant]
     Dosage: 0.5 ML, UNK
     Route: 030
     Dates: start: 20130904, end: 20130904
  24. CALCIUM [Concomitant]
     Dosage: UNK
  25. LACTINEX [Concomitant]
     Dosage: UNK
  26. LEVAQUIN [Concomitant]
     Indication: URINARY TRACT INFECTION
     Dosage: 250 MG, QD
     Route: 048
     Dates: start: 20131015
  27. DILAUDID [Concomitant]
     Indication: PAIN
     Dosage: 1 MG,SINGLE DOSE
     Route: 042
     Dates: start: 20131018, end: 20131018
  28. ZOFRAN                             /00955301/ [Concomitant]
     Indication: PAIN
     Dosage: 4 MG,4 IN 1 D
     Route: 048
     Dates: start: 20131020
  29. REGLAN                             /00041902/ [Concomitant]
     Indication: PAIN
     Dosage: 5 MG, QD
     Route: 042
     Dates: start: 20131018, end: 20131018
  30. PROMETHAZINE [Concomitant]
     Dosage: 25 MG,SINGLE DOSE
     Route: 042
     Dates: start: 20131020
  31. FAMOTIDINE [Concomitant]
     Dosage: 20 MG, QD
     Route: 042
     Dates: start: 20131020, end: 20131020
  32. ZADITOR                            /00495202/ [Concomitant]
     Dosage: 0.035 %,4 IN 1 D
     Route: 047
     Dates: start: 20140102
  33. BENADRYL                           /00000402/ [Concomitant]
     Indication: PAIN
     Dosage: 12.5 MG, QD
     Route: 042
     Dates: start: 20131018, end: 20131018
  34. DURAGESIC                          /00070401/ [Concomitant]
     Indication: PAIN
     Dosage: 25 MUG, QD
     Route: 062
     Dates: start: 20131018, end: 20131018

REACTIONS (3)
  - Diabetic foot [Recovered/Resolved]
  - Epistaxis [Recovered/Resolved]
  - Hyperkalaemia [Recovered/Resolved]
